FAERS Safety Report 5457052-X (Version None)
Quarter: 2007Q3

REPORT INFORMATION
  Report Type: 
  Country: None (occurrence: None)
  Receive Date: 20070918
  Receipt Date: 20061221
  Transmission Date: 20080115
  Serious: Yes (Hospitalization)
  Sender: FDA-Public Use
  Company Number: US-ASTRAZENECA-2006UW28420

PATIENT
  Age: 35 Year
  Sex: Male

DRUGS (4)
  1. SEROQUEL [Suspect]
     Route: 048
  2. WELLBUTRIN [Suspect]
  3. ALCOHOL [Suspect]
  4. ZYPREXA [Suspect]

REACTIONS (2)
  - CATATONIA [None]
  - HALLUCINATION [None]
